FAERS Safety Report 15792643 (Version 2)
Quarter: 2019Q1

REPORT INFORMATION
  Report Type: Spontaneous
  Country: GB (occurrence: GB)
  Receive Date: 20190107
  Receipt Date: 20190221
  Transmission Date: 20190417
  Serious: Yes (Other)
  Sender: FDA-Public Use
  Company Number: GB-AMGEN-GBRSP2018187420

PATIENT
  Age: 61 Year
  Sex: Female

DRUGS (1)
  1. ENBREL [Suspect]
     Active Substance: ETANERCEPT
     Indication: RHEUMATOID ARTHRITIS
     Dosage: 25 MG, EVERY 2 WEEKS
     Route: 058
     Dates: start: 20150526, end: 2017

REACTIONS (4)
  - Product use issue [Unknown]
  - Skin exfoliation [Unknown]
  - Pain [Unknown]
  - Arthritis infective [Unknown]

NARRATIVE: CASE EVENT DATE: 20150526
